FAERS Safety Report 22391721 (Version 1)
Quarter: 2023Q2

REPORT INFORMATION
  Report Type: Spontaneous
  Country: FR (occurrence: FR)
  Receive Date: 20230601
  Receipt Date: 20230601
  Transmission Date: 20230722
  Serious: Yes (Hospitalization)
  Sender: FDA-Public Use
  Company Number: FR-AMGEN-FRASP2023090801

PATIENT
  Age: 50 Year
  Sex: Female
  Weight: 66 kg

DRUGS (3)
  1. REPATHA [Suspect]
     Active Substance: EVOLOCUMAB
     Indication: Infarction
     Dosage: 1 INJECTION PAR QUINZAINE
     Route: 058
     Dates: start: 20230111
  2. BISOPROLOL [Concomitant]
     Active Substance: BISOPROLOL
  3. ASPIRIN [Concomitant]
     Active Substance: ASPIRIN
     Dosage: ASPIRINE PROTECT, 100 MILLIGRAM
     Route: 048

REACTIONS (4)
  - Arthralgia [Recovering/Resolving]
  - Fatigue [Recovering/Resolving]
  - Hypertension [Recovering/Resolving]
  - Tremor [Recovering/Resolving]

NARRATIVE: CASE EVENT DATE: 20230504
